FAERS Safety Report 12203012 (Version 2)
Quarter: 2016Q2

REPORT INFORMATION
  Report Type: Spontaneous
  Country: CR (occurrence: CR)
  Receive Date: 20160323
  Receipt Date: 20160407
  Transmission Date: 20160815
  Serious: Yes (Other)
  Sender: FDA-Public Use
  Company Number: CR-ROCHE-1730171

PATIENT
  Age: 35 Year
  Sex: Female
  Weight: 74 kg

DRUGS (10)
  1. TEOFILINA [Concomitant]
  2. LORATADINA [Concomitant]
     Active Substance: LORATADINE
  3. BECONASE AQ [Concomitant]
     Active Substance: BECLOMETHASONE DIPROPIONATE MONOHYDRATE
  4. METFORMIN [Concomitant]
     Active Substance: METFORMIN HYDROCHLORIDE
     Route: 065
  5. FLUTICASONA [Concomitant]
     Active Substance: FLUTICASONE PROPIONATE
  6. XOLAIR [Suspect]
     Active Substance: OMALIZUMAB
     Indication: ASTHMA
     Route: 058
     Dates: start: 20160315
  7. MONTELUKAST [Concomitant]
     Active Substance: MONTELUKAST SODIUM
  8. ATROVENT [Concomitant]
     Active Substance: IPRATROPIUM BROMIDE
  9. SALBUTAMOL [Concomitant]
     Active Substance: ALBUTEROL
  10. NPH INSULIN [Concomitant]
     Active Substance: INSULIN BEEF

REACTIONS (4)
  - Insomnia [Unknown]
  - Hypersensitivity [Unknown]
  - Somnolence [Recovering/Resolving]
  - Influenza [Recovering/Resolving]

NARRATIVE: CASE EVENT DATE: 20160315
